FAERS Safety Report 4460226-8 (Version None)
Quarter: 2004Q3

REPORT INFORMATION
  Report Type: 
  Country: None (occurrence: None)
  Receive Date: 20040928
  Receipt Date: 20040205
  Transmission Date: 20050211
  Serious: No
  Sender: FDA-Public Use
  Company Number: US-GLAXOSMITHKLINE-A0496773A

PATIENT
  Age: 78 Year
  Sex: Female

DRUGS (7)
  1. SEREVENT [Suspect]
     Dosage: 50MCG TWICE PER DAY
     Route: 055
     Dates: start: 20031201
  2. DIAZIDE [Concomitant]
  3. TEGRETOL [Concomitant]
  4. PRILOSEC [Concomitant]
  5. VITAMIN E [Concomitant]
  6. ALOE VERA [Concomitant]
  7. VITAMIN C [Concomitant]

REACTIONS (2)
  - HEADACHE [None]
  - POLLAKIURIA [None]
